FAERS Safety Report 6257672-9 (Version None)
Quarter: 2009Q3

REPORT INFORMATION
  Report Type: 
  Country: None (occurrence: None)
  Receive Date: 20090706
  Receipt Date: 20090624
  Transmission Date: 20100115
  Serious: Yes (Congenital Anomaly)
  Sender: FDA-Public Use
  Company Number: GB-TEVA-199935ISR

PATIENT

DRUGS (2)
  1. AMITRIPTYLINE [Suspect]
     Indication: HEADACHE
     Route: 064
     Dates: start: 20020101
  2. LYMECYCLINE [Suspect]
     Route: 064
     Dates: start: 20040101, end: 20080925

REACTIONS (2)
  - DRUG EXPOSURE DURING PREGNANCY [None]
  - HYPOSPADIAS [None]
